FAERS Safety Report 25051412 (Version 1)
Quarter: 2025Q1

REPORT INFORMATION
  Report Type: Spontaneous
  Country: None (occurrence: JP)
  Receive Date: 20250307
  Receipt Date: 20250307
  Transmission Date: 20250409
  Serious: Yes (Hospitalization)
  Sender: CARA THERAPEUTICS
  Company Number: JP-CARA THERAPEUTICS, INC.-2025-00084-JP

PATIENT

DRUGS (3)
  1. KORSUVA [Suspect]
     Active Substance: DIFELIKEFALIN ACETATE
     Indication: Pruritus
     Route: 065
  2. OLOPATADINE [Concomitant]
     Active Substance: OLOPATADINE
  3. OMARIGLIPTIN [Concomitant]
     Active Substance: OMARIGLIPTIN

REACTIONS (2)
  - Pelvic fracture [Unknown]
  - Fall [Unknown]
